FAERS Safety Report 8979743 (Version 1)
Quarter: 2012Q4

REPORT INFORMATION
  Report Type: 
  Country: US (occurrence: US)
  Receive Date: 20121221
  Receipt Date: 20121221
  Transmission Date: 20130627
  Serious: Yes (Other)
  Sender: FDA-Public Use
  Company Number: PHEH2012US025072

PATIENT
  Sex: Female

DRUGS (1)
  1. GLEEVEC [Suspect]

REACTIONS (4)
  - Hepatic steatosis [Unknown]
  - Leukaemia recurrent [Unknown]
  - Hepatic enzyme increased [Unknown]
  - Haemoglobin decreased [Unknown]
